FAERS Safety Report 17068693 (Version 2)
Quarter: 2020Q1

REPORT INFORMATION
  Report Type: Spontaneous
  Country: DE (occurrence: DE)
  Receive Date: 20191123
  Receipt Date: 20200121
  Transmission Date: 20200409
  Serious: Yes (Death, Other)
  Sender: FDA-Public Use
  Company Number: NVSC2019DE044196

PATIENT
  Age: 51 Year
  Sex: Female

DRUGS (1)
  1. GILENYA [Suspect]
     Active Substance: FINGOLIMOD HYDROCHLORIDE
     Indication: MULTIPLE SCLEROSIS
     Dosage: DAILY DOSE: 0.5 MG MILLGRAM(S) EVERY DAYS
     Route: 048
     Dates: start: 20190710

REACTIONS (1)
  - Death [Fatal]

NARRATIVE: CASE EVENT DATE: 20190719
